FAERS Safety Report 6009572-7 (Version None)
Quarter: 2008Q4

REPORT INFORMATION
  Report Type: 
  Country: None (occurrence: None)
  Receive Date: 20081217
  Receipt Date: 20081015
  Transmission Date: 20090506
  Serious: No
  Sender: FDA-Public Use
  Company Number: US-BAYER-200836222NA

PATIENT
  Age: 34 Year
  Sex: Female
  Weight: 43 kg

DRUGS (2)
  1. YAZ [Suspect]
     Indication: CONTRACEPTION
     Route: 048
     Dates: start: 20081010
  2. BENADRYL [Concomitant]
     Indication: SEASONAL ALLERGY

REACTIONS (6)
  - ABDOMINAL DISTENSION [None]
  - DIARRHOEA [None]
  - FEELING HOT [None]
  - MOOD SWINGS [None]
  - NAUSEA [None]
  - PAIN IN EXTREMITY [None]
